FAERS Safety Report 24140649 (Version 3)
Quarter: 2024Q3

REPORT INFORMATION
  Report Type: Report from Study
  Country: US (occurrence: US)
  Receive Date: 20240726
  Receipt Date: 20240927
  Transmission Date: 20241016
  Serious: Yes (Hospitalization)
  Sender: MYLAN
  Company Number: US-MYLANLABS-2024M1069046

PATIENT
  Sex: Female
  Weight: 43.09 kg

DRUGS (2)
  1. TOBI [Suspect]
     Active Substance: TOBRAMYCIN
     Indication: Bronchiectasis
     Dosage: UNK
     Route: 065
  2. TOBI [Suspect]
     Active Substance: TOBRAMYCIN
     Dosage: 300 MILLIGRAM, BID (1 AMPULE 28 DAYS ON 28 DAYS OFFF REPEAT CYCLE).
     Route: 055

REACTIONS (2)
  - Hospitalisation [Unknown]
  - Off label use [Unknown]
